FAERS Safety Report 10374582 (Version 1)
Quarter: 2014Q1

REPORT INFORMATION
  Report Type: Spontaneous
  Country: US (occurrence: None)
  Receive Date: 20140306
  Receipt Date: 20140306
  Transmission Date: 20141002
  Serious: Yes (Other)
  Sender: FDA-Public Use
  Company Number: 163-21880-13010616

PATIENT
  Age: 63 Year
  Sex: Female
  Weight: 83.01 kg

DRUGS (5)
  1. REVLIMID (LENALIDOMIDE) (15 MILLIGRAM, CAPSULES) [Suspect]
     Indication: PLASMA CELL MYELOMA
     Route: 048
     Dates: start: 201008
  2. ASPIRIN (ACETYLSALICYLIC ACID) (UNKNOWN) (ACETYLSALICYLIC ACID) [Concomitant]
  3. CARVEDILOL (CARVEDILOL) (UNKNOWN) [Concomitant]
  4. MORPHINE (MORPHINE) (UNKNOWN) (MORPHINE) [Concomitant]
  5. LORAZEPAM (LORAZEPAM) (UNKNOWN) [Concomitant]

REACTIONS (1)
  - Pancytopenia [None]
